FAERS Safety Report 5583267-6 (Version None)
Quarter: 2008Q1

REPORT INFORMATION
  Report Type: 
  Country: None (occurrence: None)
  Receive Date: 20080107
  Receipt Date: 20070914
  Transmission Date: 20080703
  Serious: No
  Sender: FDA-Public Use
  Company Number: US-BAYER-200712952BCC

PATIENT
  Age: 71 Year
  Sex: Female
  Weight: 59 kg

DRUGS (4)
  1. ALEVE [Suspect]
     Indication: ARTHRITIS
     Dosage: TOTAL DAILY DOSE: 440 MG  UNIT DOSE: 220 MG
     Route: 048
     Dates: start: 20070701
  2. ALEVE [Suspect]
     Route: 048
     Dates: start: 20070701, end: 20070911
  3. CRESTOR [Concomitant]
  4. EVISTA [Concomitant]

REACTIONS (1)
  - FAECES DISCOLOURED [None]
